FAERS Safety Report 8554544-1 (Version None)
Quarter: 2012Q3

REPORT INFORMATION
  Report Type: 
  Country: None (occurrence: None)
  Receive Date: 20120731
  Receipt Date: 20120723
  Transmission Date: 20120928
  Serious: No
  Sender: FDA-Public Use
  Company Number: US-009507513-1207USA009838

PATIENT

DRUGS (4)
  1. NEURONTIN [Suspect]
     Dosage: 2*100 MG, BID
     Route: 048
  2. COREG [Concomitant]
     Dosage: 12.5 MG, BID
  3. LISINOPRIL [Concomitant]
     Dosage: 5 MG, BID
  4. VYTORIN [Suspect]
     Dosage: 10/20 MG, QD
     Route: 048

REACTIONS (2)
  - SOMNOLENCE [None]
  - MUSCLE SPASMS [None]
